FAERS Safety Report 12916647 (Version 1)
Quarter: 2016Q4

REPORT INFORMATION
  Report Type: Spontaneous
  Country: JP (occurrence: JP)
  Receive Date: 20161107
  Receipt Date: 20161107
  Transmission Date: 20170207
  Serious: Yes (Life-Threatening, Other)
  Sender: FDA-Public Use
  Company Number: JP-ACCORD-038701

PATIENT
  Age: 81 Year
  Sex: Female

DRUGS (2)
  1. DOCETAXEL. [Suspect]
     Active Substance: DOCETAXEL
     Indication: EXTRAMAMMARY PAGET^S DISEASE
     Dosage: MONTHLY DOCETAXEL THERAPY (60 MG/M2, ONCE EVERY4 WEEKS)THEN TRANSFER TO ONCE WEEKLY 25 MG/M2 THERAPY
  2. FILGRASTIM/GRANULOCYTE COLONY STIMULATING/LENOGRASTIM [Suspect]
     Active Substance: GRANULOCYTE COLONY-STIMULATING FACTOR NOS
     Indication: NEUTROPENIA

REACTIONS (3)
  - Drug resistance [Unknown]
  - Anaphylactic shock [Unknown]
  - Neutropenia [Unknown]
